FAERS Safety Report 6117667-2 (Version None)
Quarter: 2009Q1

REPORT INFORMATION
  Report Type: 
  Country: None (occurrence: None)
  Receive Date: 20090314
  Receipt Date: 20090122
  Transmission Date: 20090719
  Serious: No
  Sender: FDA-Public Use
  Company Number: US-ABBOTT-09P-163-0499435-00

PATIENT
  Sex: Female
  Weight: 72.64 kg

DRUGS (6)
  1. HUMIRA [Suspect]
     Indication: RHEUMATOID ARTHRITIS
     Route: 058
     Dates: start: 20060801, end: 20081101
  2. LORAZEPAM [Concomitant]
     Indication: INSOMNIA
     Route: 048
  3. NABUMETONE [Concomitant]
     Indication: INFLAMMATION
     Route: 048
  4. NORTRIPTYLINE HCL [Concomitant]
     Indication: HEADACHE
     Route: 048
  5. METHOTREXATE [Concomitant]
     Indication: RHEUMATOID ARTHRITIS
     Route: 048
  6. ATENOLOL [Concomitant]
     Indication: HYPERTENSION
     Route: 048

REACTIONS (2)
  - ARTHRALGIA [None]
  - INSOMNIA [None]
